FAERS Safety Report 9835440 (Version 1)
Quarter: 2014Q1

REPORT INFORMATION
  Report Type: Spontaneous
  Country: US (occurrence: US)
  Receive Date: 20140122
  Receipt Date: 20140122
  Transmission Date: 20141002
  Serious: No
  Sender: FDA-Public Use
  Company Number: US-BRISTOL-MYERS SQUIBB COMPANY-19608751

PATIENT
  Age: 68 Year
  Sex: Female
  Weight: 86.17 kg

DRUGS (1)
  1. ELIQUIS [Suspect]
     Indication: ATRIAL FIBRILLATION

REACTIONS (3)
  - Musculoskeletal stiffness [Unknown]
  - Dyspnoea [Unknown]
  - Pain [Unknown]
